FAERS Safety Report 24525370 (Version 1)
Quarter: 2024Q4

REPORT INFORMATION
  Report Type: Spontaneous
  Country: US (occurrence: US)
  Receive Date: 20241019
  Receipt Date: 20241019
  Transmission Date: 20250115
  Serious: Yes (Disabling, Other)
  Sender: JSS Medical Research
  Company Number: US-JSS Medical Research-2163360

PATIENT
  Age: 42 Year
  Sex: Male

DRUGS (1)
  1. DETECTNET [Suspect]
     Active Substance: COPPER OXODOTREOTIDE CU-64
     Dates: start: 20241001, end: 20241001

REACTIONS (2)
  - Nasopharyngitis [Recovered/Resolved]
  - Blindness [Not Recovered/Not Resolved]

NARRATIVE: CASE EVENT DATE: 20241001
